FAERS Safety Report 7934786-6 (Version None)
Quarter: 2011Q4

REPORT INFORMATION
  Report Type: 
  Country: None (occurrence: None)
  Receive Date: 20111122
  Receipt Date: 20111117
  Transmission Date: 20120403
  Serious: Yes (Disabling, Other)
  Sender: FDA-Public Use
  Company Number: ES-ABBOTT-11P-144-0868845-00

PATIENT
  Sex: Female

DRUGS (3)
  1. OPTIVITE B12 [Concomitant]
     Indication: PRODUCT USED FOR UNKNOWN INDICATION
     Route: 030
  2. HUMIRA [Suspect]
     Indication: CROHN'S DISEASE
     Route: 050
     Dates: start: 20110401, end: 20111001
  3. OMEPRAZOLE [Concomitant]
     Indication: PRODUCT USED FOR UNKNOWN INDICATION
     Route: 048

REACTIONS (5)
  - VISUAL ACUITY REDUCED [None]
  - CORNEAL LEUKOMA [None]
  - ALOPECIA AREATA [None]
  - KERATITIS [None]
  - SQUAMOUS CELL CARCINOMA OF SKIN [None]
